FAERS Safety Report 8565594-3 (Version None)
Quarter: 2012Q3

REPORT INFORMATION
  Report Type: 
  Country: None (occurrence: None)
  Receive Date: 20120803
  Receipt Date: 20120727
  Transmission Date: 20120928
  Serious: Yes (Hospitalization, Other)
  Sender: FDA-Public Use
  Company Number: US-009507513-2009SP040437

PATIENT

DRUGS (8)
  1. NORVASC [Concomitant]
     Dosage: 10 MG, QD
  2. NUVARING [Suspect]
     Indication: CONTRACEPTION
     Route: 067
     Dates: start: 20060501, end: 20060821
  3. ZOLOFT [Concomitant]
     Dosage: 50 MG, QD
  4. METICORTEN [Concomitant]
     Indication: RHEUMATOID ARTHRITIS
     Dosage: 10 MG, QD
     Dates: start: 20040101
  5. METHOTREXATE [Concomitant]
     Indication: RHEUMATOID ARTHRITIS
     Dosage: 15 MG, QW
  6. NORVASC [Concomitant]
     Dosage: 10 MG, QD
     Dates: start: 20000101
  7. FOLIC ACID [Concomitant]
     Dosage: 1 DF, QD
  8. DARVOCET-N 50 [Concomitant]
     Indication: PAIN
     Dosage: UNK UNK, PRN

REACTIONS (9)
  - PULMONARY EMBOLISM [None]
  - MENSTRUAL DISORDER [None]
  - DYSPNOEA [None]
  - VENA CAVA THROMBOSIS [None]
  - PULMONARY INFARCTION [None]
  - VISUAL IMPAIRMENT [None]
  - ASTHENIA [None]
  - ARTHRALGIA [None]
  - LUNG DISORDER [None]
